FAERS Safety Report 5156820-1 (Version None)
Quarter: 2006Q4

REPORT INFORMATION
  Report Type: 
  Country: None (occurrence: None)
  Receive Date: 20061115
  Receipt Date: 20061108
  Transmission Date: 20070319
  Serious: Yes (Other)
  Sender: FDA-Public Use
  Company Number: HQWYE446523OCT06

PATIENT
  Age: 78 Year
  Sex: Female

DRUGS (6)
  1. AMIODARONE HCL [Suspect]
     Indication: ATRIAL FIBRILLATION
     Dosage: ORAL
     Route: 048
     Dates: start: 20060901
  2. MARCUMAR [Concomitant]
  3. METOPROLOL SUCCINATE [Concomitant]
  4. TORSEMIDE [Concomitant]
  5. ATACAND [Concomitant]
  6. SIMVASTATIN [Concomitant]

REACTIONS (3)
  - MACULAR DEGENERATION [None]
  - RETINAL HAEMORRHAGE [None]
  - VISION BLURRED [None]
